FAERS Safety Report 6722434-2 (Version None)
Quarter: 2010Q2

REPORT INFORMATION
  Report Type: 
  Country: None (occurrence: None)
  Receive Date: 20100512
  Receipt Date: 20100430
  Transmission Date: 20101027
  Serious: Yes (Other)
  Sender: FDA-Public Use
  Company Number: US-BAYER-201021262NA

PATIENT
  Age: 59 Year
  Sex: Male

DRUGS (1)
  1. MAGNEVIST [Suspect]
     Indication: NUCLEAR MAGNETIC RESONANCE IMAGING
     Dosage: TOTAL DAILY DOSE: 32 ML
     Route: 042
     Dates: start: 20100430, end: 20100430

REACTIONS (8)
  - COLD SWEAT [None]
  - DIZZINESS [None]
  - EYE SWELLING [None]
  - HYPERHIDROSIS [None]
  - OCULAR HYPERAEMIA [None]
  - PALLOR [None]
  - RASH [None]
  - SPEECH DISORDER [None]
